FAERS Safety Report 9053424 (Version 1)
Quarter: 2013Q1

REPORT INFORMATION
  Report Type: Spontaneous
  Country: US (occurrence: None)
  Receive Date: 20130114
  Receipt Date: 20130114
  Transmission Date: 20140127
  Serious: Yes (Hospitalization)
  Sender: FDA-Public Use
  Company Number: 33676

PATIENT
  Sex: Male
  Weight: 110.9 kg

DRUGS (18)
  1. GLASSIA [Suspect]
     Indication: ALPHA-1 ANTI-TRYPSIN DECREASED
     Route: 042
     Dates: start: 20110101, end: 201109
  2. ISOSORBIDE [Concomitant]
  3. PANTOPRAZOLE [Concomitant]
  4. ASPIRIN 81 MG [Concomitant]
  5. GLIPIZIDE [Concomitant]
  6. GABAPENTIN [Concomitant]
  7. GEMFIBROZIL [Concomitant]
  8. NORVASC [Concomitant]
  9. CINNAMON [Concomitant]
  10. AVODART [Concomitant]
  11. TAMSULOSIN [Concomitant]
  12. DUCOLAX [Concomitant]
  13. PLAVIX [Concomitant]
  14. ATROVENT [Concomitant]
  15. SPIRIVA [Concomitant]
  16. LANTUS [Concomitant]
  17. HUMALOG [Concomitant]
  18. OXYGEN [Concomitant]

REACTIONS (5)
  - Cardiac failure congestive [None]
  - Nephrolithiasis [None]
  - Prostatic disorder [None]
  - Scrotal swelling [None]
  - Chest pain [None]
